FAERS Safety Report 6643082-9 (Version None)
Quarter: 2010Q1

REPORT INFORMATION
  Report Type: 
  Country: None (occurrence: None)
  Receive Date: 20100319
  Receipt Date: 20100308
  Transmission Date: 20100710
  Serious: Yes (Other)
  Sender: FDA-Public Use
  Company Number: PHHY2009DE50719

PATIENT
  Sex: Male
  Weight: 114 kg

DRUGS (1)
  1. ACLASTA [Suspect]
     Indication: OSTEOPOROSIS
     Dosage: 5 MG
     Route: 042
     Dates: start: 20090601, end: 20090601

REACTIONS (7)
  - BONE FRAGMENTATION [None]
  - EXCESSIVE GRANULATION TISSUE [None]
  - IMPAIRED HEALING [None]
  - OSTEONECROSIS [None]
  - RADICULAR CYST [None]
  - SEQUESTRECTOMY [None]
  - TOOTH EXTRACTION [None]
